FAERS Safety Report 18796913 (Version 1)
Quarter: 2021Q1

REPORT INFORMATION
  Report Type: Spontaneous
  Country: CA (occurrence: CA)
  Receive Date: 20210127
  Receipt Date: 20210127
  Transmission Date: 20210419
  Serious: Yes (Hospitalization, Other)
  Sender: FDA-Public Use
  Company Number: CA-B.I. PHARMACEUTICALS,INC./RIDGEFIELD-2021-BI-078108

PATIENT
  Age: 5 Year
  Sex: Male

DRUGS (3)
  1. NORMAL SALINE [Concomitant]
     Active Substance: SODIUM CHLORIDE
     Indication: SOMATOTROPIN STIMULATION TEST
     Route: 042
  2. ARGININE [Suspect]
     Active Substance: ARGININE
     Indication: SOMATOTROPIN STIMULATION TEST
     Route: 042
  3. CATAPRES [Suspect]
     Active Substance: CLONIDINE HYDROCHLORIDE
     Indication: SOMATOTROPIN STIMULATION TEST
     Dosage: 100.0 UG/M2
     Route: 048

REACTIONS (5)
  - Gait disturbance [Recovered/Resolved]
  - Weight bearing difficulty [Recovered/Resolved]
  - Haematuria [Recovered/Resolved]
  - Hypotension [Recovered/Resolved]
  - Myalgia [Recovered/Resolved]
